FAERS Safety Report 8825583 (Version 1)
Quarter: 2012Q4

REPORT INFORMATION
  Report Type: 
  Country: US (occurrence: US)
  Receive Date: 20121004
  Receipt Date: 20121004
  Transmission Date: 20130627
  Serious: Yes (Hospitalization)
  Sender: FDA-Public Use
  Company Number: PHHO2012US014223

PATIENT
  Age: 72 Year
  Sex: Male
  Weight: 79.6 kg

DRUGS (2)
  1. AFINITOR [Suspect]
     Indication: PROSTATE CANCER METASTATIC
     Dosage: 5 mg,daily
     Route: 048
     Dates: start: 20110513, end: 20120926
  2. CARBOPLATIN [Suspect]
     Indication: PROSTATE CANCER METASTATIC
     Dosage: 330 mg, every 4 weeks
     Route: 042
     Dates: start: 20110513, end: 20120906

REACTIONS (1)
  - Renal tubular necrosis [Recovering/Resolving]
